FAERS Safety Report 7232585-4 (Version None)
Quarter: 2011Q1

REPORT INFORMATION
  Report Type: 
  Country: None (occurrence: None)
  Receive Date: 20110119
  Receipt Date: 20110110
  Transmission Date: 20110831
  Serious: Yes (Hospitalization)
  Sender: FDA-Public Use
  Company Number: GB-MPIJNJ-2011-00103

PATIENT

DRUGS (2)
  1. ACYCLOVIR [Concomitant]
     Indication: PROPHYLAXIS
  2. VELCADE [Suspect]
     Indication: PRODUCT USED FOR UNKNOWN INDICATION
     Dosage: UNK
     Route: 065

REACTIONS (2)
  - HERPES ZOSTER [None]
  - HOSPITALISATION [None]
